FAERS Safety Report 18581940 (Version 2)
Quarter: 2020Q4

REPORT INFORMATION
  Report Type: Spontaneous
  Country: US (occurrence: US)
  Receive Date: 20201204
  Receipt Date: 20201217
  Transmission Date: 20210114
  Serious: No
  Sender: FDA-Public Use
  Company Number: US-PFIZER INC-2020477450

PATIENT
  Age: 62 Year
  Sex: Female

DRUGS (2)
  1. IBRANCE [Suspect]
     Active Substance: PALBOCICLIB
     Dosage: UNK
     Dates: start: 20201118
  2. IBRANCE [Suspect]
     Active Substance: PALBOCICLIB
     Dosage: 125 MG
     Dates: start: 20201120

REACTIONS (8)
  - Headache [Not Recovered/Not Resolved]
  - Red blood cell count decreased [Unknown]
  - Pyrexia [Unknown]
  - Vomiting [Unknown]
  - White blood cell count decreased [Unknown]
  - Nausea [Unknown]
  - Oral herpes [Unknown]
  - Fungal infection [Unknown]

NARRATIVE: CASE EVENT DATE: 2020
